FAERS Safety Report 9086099 (Version 1)
Quarter: 2013Q1

REPORT INFORMATION
  Report Type: Report from Study
  Country: US (occurrence: US)
  Receive Date: 20130130
  Receipt Date: 20130130
  Transmission Date: 20140127
  Serious: No
  Sender: FDA-Public Use
  Company Number: US-ABBOTT-12P-163-0974964-00

PATIENT
  Age: 50 Year
  Sex: Female

DRUGS (25)
  1. HUMIRA [Suspect]
     Indication: CROHN^S DISEASE
     Dates: start: 20120731, end: 20120828
  2. GABAPENTIN [Concomitant]
     Indication: ARTHRITIS
     Dosage: 2 IN AM, 3 IN PM
  3. ASACOL [Concomitant]
     Indication: GASTRIC DISORDER
     Dosage: 3X DAILY
  4. MORPHINE [Concomitant]
     Indication: PAIN
  5. OXYCODONE [Concomitant]
     Indication: ARTHRALGIA
  6. SOMA [Concomitant]
     Indication: PAIN
  7. OMEPRAZOLE [Concomitant]
     Indication: GASTRIC DISORDER
     Dosage: EVERY MORNING
  8. LOVASTATIN [Concomitant]
     Indication: BLOOD CHOLESTEROL
  9. ACYCLOVIR [Concomitant]
     Indication: HERPES ZOSTER
  10. TRAZODONE [Concomitant]
     Indication: INSOMNIA
     Dosage: ONCE AT NIGHT
  11. BUSPAR [Concomitant]
     Indication: ANXIETY
  12. AZITHROMYCIN [Concomitant]
     Indication: GASTRIC DISORDER
  13. ZYRTEC [Concomitant]
     Indication: HYPERSENSITIVITY
  14. BENADRYL [Concomitant]
     Indication: PRODUCT USED FOR UNKNOWN INDICATION
  15. PROGESTERONE [Concomitant]
     Indication: PRODUCT USED FOR UNKNOWN INDICATION
     Dosage: DAILY
  16. CYMBALTA [Concomitant]
     Indication: PAIN
     Dosage: EVERY NIGHT
  17. VOLTAREN [Concomitant]
     Indication: MYALGIA
  18. EPI PEN [Concomitant]
     Indication: HYPERSENSITIVITY
  19. POLYETHYLENE GLYCOL [Concomitant]
     Indication: BOWEL MOVEMENT IRREGULARITY
     Dosage: DAILY
  20. MAGNESIUM COMPOUNDS [Concomitant]
     Indication: PRODUCT USED FOR UNKNOWN INDICATION
     Dosage: DAILY
  21. CALCIUM WITH VITAMIN D [Concomitant]
     Indication: PRODUCT USED FOR UNKNOWN INDICATION
     Dosage: DAILY
  22. PROBIOTIC [Concomitant]
     Indication: DYSPEPSIA
  23. FISH OIL [Concomitant]
     Indication: PRODUCT USED FOR UNKNOWN INDICATION
     Dosage: DAILY
  24. VITAMIN D3 [Concomitant]
     Indication: PRODUCT USED FOR UNKNOWN INDICATION
     Dosage: DAILY
  25. ACETYL L CARNITINE ALPHA LIPOIC ACID [Concomitant]
     Indication: NERVOUS SYSTEM DISORDER
     Dosage: 500/200MG THREE TIMES A DAY

REACTIONS (5)
  - Limb discomfort [Not Recovered/Not Resolved]
  - Pain [Not Recovered/Not Resolved]
  - Injection site erythema [Not Recovered/Not Resolved]
  - Injection site urticaria [Not Recovered/Not Resolved]
  - Arthralgia [Unknown]
